FAERS Safety Report 15395728 (Version 2)
Quarter: 2018Q4

REPORT INFORMATION
  Report Type: Report from Study
  Country: PA (occurrence: PA)
  Receive Date: 20180918
  Receipt Date: 20181001
  Transmission Date: 20190204
  Serious: Yes (Other)
  Sender: FDA-Public Use
  Company Number: PA-ROCHE-2185536

PATIENT
  Age: 53 Year
  Sex: Male

DRUGS (2)
  1. ACCENTRIX [Suspect]
     Active Substance: RANIBIZUMAB
     Route: 065
     Dates: start: 20180823, end: 20180823
  2. ACCENTRIX [Suspect]
     Active Substance: RANIBIZUMAB
     Indication: PRODUCT USED FOR UNKNOWN INDICATION
     Route: 065

REACTIONS (8)
  - Visual impairment [Unknown]
  - Eye discharge [Unknown]
  - Depression [Unknown]
  - Eye haemorrhage [Recovering/Resolving]
  - Drug ineffective [Unknown]
  - Incorrect dose administered [Unknown]
  - Vision blurred [Unknown]
  - Asthenopia [Unknown]
